FAERS Safety Report 21761049 (Version 1)
Quarter: 2022Q4

REPORT INFORMATION
  Report Type: Spontaneous
  Country: US (occurrence: None)
  Receive Date: 20221220
  Receipt Date: 20221220
  Transmission Date: 20230113
  Serious: Yes (Hospitalization)
  Sender: FDA-Public Use
  Company Number: None

PATIENT
  Age: 74 Year
  Sex: Female
  Weight: 55.61 kg

DRUGS (28)
  1. LETROZOLE [Suspect]
     Active Substance: LETROZOLE
     Indication: Breast cancer female
     Dosage: OTHER QUANTITY : 2.5MG;?FREQUENCY : DAILY;?
     Route: 048
  2. ALLEGRA [Concomitant]
     Active Substance: FEXOFENADINE HYDROCHLORIDE
  3. ASPIRIN [Concomitant]
     Active Substance: ASPIRIN
  4. ATORVASTATIN [Concomitant]
     Active Substance: ATORVASTATIN
  5. BENTO [Concomitant]
  6. BENZONATATE [Concomitant]
     Active Substance: BENZONATATE
  7. BETAMETHASONE [Concomitant]
     Active Substance: BETAMETHASONE
  8. BIOTIN [Concomitant]
     Active Substance: BIOTIN
  9. CALCIUM [Concomitant]
     Active Substance: CALCIUM
  10. CALCIUM [Concomitant]
     Active Substance: CALCIUM
  11. CETIRIZINE [Concomitant]
     Active Substance: CETIRIZINE HYDROCHLORIDE
  12. COLLAGEN [Concomitant]
     Active Substance: COLLAGEN
  13. KEPPRA [Concomitant]
     Active Substance: LEVETIRACETAM
  14. MELATONIN [Concomitant]
     Active Substance: MELATONIN
  15. OFLOXACIN [Concomitant]
     Active Substance: OFLOXACIN
  16. PERCOCET [Concomitant]
     Active Substance: ACETAMINOPHEN\OXYCODONE HYDROCHLORIDE
  17. PREDNISOLONE [Concomitant]
     Active Substance: PREDNISOLONE
  18. PROLENSA [Concomitant]
     Active Substance: BROMFENAC SODIUM
  19. PROLIA [Concomitant]
     Active Substance: DENOSUMAB
  20. TAMSULOSIN [Concomitant]
     Active Substance: TAMSULOSIN
  21. TOPROL XL [Concomitant]
     Active Substance: METOPROLOL SUCCINATE
  22. TRAMADOL [Concomitant]
     Active Substance: TRAMADOL
  23. TRIAMCINOLONE [Concomitant]
     Active Substance: TRIAMCINOLONE
  24. VENTOLIN [Concomitant]
     Active Substance: ALBUTEROL SULFATE
  25. VITAMIN B12 [Concomitant]
     Active Substance: CYANOCOBALAMIN
  26. VITAMIN C [Concomitant]
     Active Substance: ASCORBIC ACID
  27. VITAMIN D [Concomitant]
     Active Substance: VITAMIN D NOS
  28. ZINC [Concomitant]
     Active Substance: ZINC

REACTIONS (1)
  - Cerebral haemorrhage [None]
